FAERS Safety Report 5201906-6 (Version None)
Quarter: 2006Q4

REPORT INFORMATION
  Report Type: 
  Country: None (occurrence: None)
  Receive Date: 20061010
  Receipt Date: 20060220
  Transmission Date: 20070319
  Serious: Yes (Hospitalization)
  Sender: FDA-Public Use
  Company Number: 2006-02-1369

PATIENT
  Sex: Female

DRUGS (1)
  1. TEMODAR [Suspect]
     Indication: BRAIN NEOPLASM
     Dosage: ORAL
     Route: 048

REACTIONS (6)
  - COGNITIVE DISORDER [None]
  - CONVULSION [None]
  - DISEASE PROGRESSION [None]
  - INTENTIONAL DRUG MISUSE [None]
  - MEDICATION ERROR [None]
  - STOMATITIS [None]
